FAERS Safety Report 6933039-2 (Version None)
Quarter: 2010Q3

REPORT INFORMATION
  Report Type: 
  Country: None (occurrence: None)
  Receive Date: 20100818
  Receipt Date: 20100818
  Transmission Date: 20110219
  Serious: Yes (Life-Threatening, Hospitalization, Disabling)
  Sender: FDA-Public Use
  Company Number: None

PATIENT
  Age: 52 Year
  Sex: Female
  Weight: 52.1637 kg

DRUGS (6)
  1. OXCARBAZEPINE [Suspect]
     Indication: TRIGEMINAL NEURALGIA
     Dosage: 1 3 X DAILY ORAL
     Route: 048
     Dates: start: 20080515, end: 20090101
  2. CELEBREX [Concomitant]
  3. METOPROLOL [Concomitant]
  4. SYTHTHROID [Concomitant]
  5. LIPITOR [Concomitant]
  6. BACLOFEN [Concomitant]

REACTIONS (5)
  - ABDOMINAL PAIN UPPER [None]
  - BLOOD SODIUM DECREASED [None]
  - CONFUSIONAL STATE [None]
  - LETHARGY [None]
  - PRODUCT SUBSTITUTION ISSUE [None]
